FAERS Safety Report 9257831 (Version 2)
Quarter: 2013Q2

REPORT INFORMATION
  Report Type: Spontaneous
  Country: JP (occurrence: JP)
  Receive Date: 20130426
  Receipt Date: 20130516
  Transmission Date: 20140414
  Serious: Yes (Death)
  Sender: FDA-Public Use
  Company Number: JP-NOVOPROD-376100

PATIENT
  Age: 67 Year
  Sex: Male
  Weight: 60 kg

DRUGS (4)
  1. NOVOSEVEN HI [Suspect]
     Indication: ACQUIRED HAEMOPHILIA
     Dosage: 90 ?G/KG, QD
     Route: 042
     Dates: start: 201209, end: 20121001
  2. DEXAMETHASONE [Concomitant]
     Indication: IMMUNOSUPPRESSION
     Dosage: 40 MG, QD
     Route: 048
     Dates: start: 201209
  3. ENDOXAN                            /00021101/ [Concomitant]
     Indication: IMMUNOSUPPRESSION
     Dosage: 500 MG, QD
     Route: 042
     Dates: start: 201209
  4. ARIXTRA [Concomitant]
     Indication: ANTICOAGULANT THERAPY
     Dosage: 2.50 MG, QD
     Route: 058
     Dates: start: 201209

REACTIONS (1)
  - Multi-organ failure [Fatal]
